FAERS Safety Report 7799399-8 (Version None)
Quarter: 2011Q4

REPORT INFORMATION
  Report Type: 
  Country: None (occurrence: None)
  Receive Date: 20111006
  Receipt Date: 20110928
  Transmission Date: 20120403
  Serious: Yes (Hospitalization)
  Sender: FDA-Public Use
  Company Number: US-US-EMD SERONO, INC.-7086758

PATIENT
  Sex: Male
  Weight: 100 kg

DRUGS (3)
  1. REBIF [Suspect]
     Indication: MULTIPLE SCLEROSIS
     Route: 058
     Dates: start: 20050926
  2. UNSPECIFIED HIGH BLOOD PRESSURE MEDICATION [Concomitant]
     Indication: HYPERTENSION
  3. UNSPECIFIED MEDICATION [Concomitant]
     Indication: CONVULSION

REACTIONS (2)
  - CONVULSION [None]
  - MULTIPLE SCLEROSIS RELAPSE [None]
